FAERS Safety Report 8399218-5 (Version None)
Quarter: 2012Q2

REPORT INFORMATION
  Report Type: 
  Country: None (occurrence: None)
  Receive Date: 20120531
  Receipt Date: 20120525
  Transmission Date: 20120825
  Serious: Yes (Disabling)
  Sender: FDA-Public Use
  Company Number: US-GLAXOSMITHKLINE-A0976142A

PATIENT
  Age: 40 Year
  Sex: Male

DRUGS (4)
  1. IBUPROFEN [Suspect]
  2. IMITREX [Suspect]
     Indication: MIGRAINE
     Dosage: 100MG AS REQUIRED
     Route: 048
     Dates: start: 20070101
  3. IMITREX [Suspect]
     Dosage: 6MG AS REQUIRED
     Route: 058
     Dates: start: 20070101
  4. SUDAFED 12 HOUR [Suspect]

REACTIONS (2)
  - TENDONITIS [None]
  - ARTHRALGIA [None]
